FAERS Safety Report 9279342 (Version 2)
Quarter: 2013Q2

REPORT INFORMATION
  Report Type: Spontaneous
  Country: US (occurrence: US)
  Receive Date: 20130508
  Receipt Date: 20130610
  Transmission Date: 20140414
  Serious: Yes (Hospitalization)
  Sender: FDA-Public Use
  Company Number: US-ELI_LILLY_AND_COMPANY-US201305000052

PATIENT
  Age: 65 Year
  Sex: Female

DRUGS (5)
  1. FORTEO [Suspect]
     Indication: OSTEOPOROSIS
     Dosage: UNK UNK, QD
     Dates: start: 20130225, end: 20130402
  2. FORTEO [Suspect]
     Dosage: UNK, QD
     Dates: start: 20130426
  3. AMLODIPINE [Concomitant]
  4. DIOVAN [Concomitant]
  5. OMEPRAZOLE [Concomitant]

REACTIONS (11)
  - Dehydration [Unknown]
  - White blood cell count abnormal [Recovered/Resolved]
  - Blood glucose increased [Unknown]
  - Upper respiratory tract infection [Recovered/Resolved]
  - Cough [Unknown]
  - Tremor [Recovering/Resolving]
  - Hypersensitivity [Recovered/Resolved]
  - Vomiting [Unknown]
  - Paraesthesia [Unknown]
  - Hypertension [Unknown]
  - Visual impairment [Unknown]
